FAERS Safety Report 6538065-3 (Version None)
Quarter: 2010Q1

REPORT INFORMATION
  Report Type: 
  Country: None (occurrence: None)
  Receive Date: 20100111
  Receipt Date: 20091224
  Transmission Date: 20100710
  Serious: Yes (Death, Life-Threatening, Other)
  Sender: FDA-Public Use
  Company Number: THYM-1001333

PATIENT
  Age: 59 Year
  Sex: Male
  Weight: 55 kg

DRUGS (5)
  1. THYMOGLOBULIN [Suspect]
     Indication: BONE MARROW CONDITIONING REGIMEN
     Dosage: 125 MG, QD, INTRAVENOUS
     Route: 042
     Dates: start: 20090813, end: 20090816
  2. FLUDARABINE PHOSPHATE [Concomitant]
  3. BUSULFAN (BUSULFAN) [Concomitant]
  4. ITRACONAZOLE [Concomitant]
  5. METHYLPREDNISOLONE [Concomitant]

REACTIONS (3)
  - HEPATIC FAILURE [None]
  - PSEUDOMEMBRANOUS COLITIS [None]
  - PYREXIA [None]
